FAERS Safety Report 21546845 (Version 1)
Quarter: 2022Q4

REPORT INFORMATION
  Report Type: Report from Study
  Country: US (occurrence: US)
  Receive Date: 20221103
  Receipt Date: 20221103
  Transmission Date: 20230113
  Serious: No
  Sender: FDA-Public Use
  Company Number: US-ABBVIE-4165405

PATIENT
  Age: 31 Year
  Sex: Female

DRUGS (1)
  1. SKYRIZI [Suspect]
     Active Substance: RISANKIZUMAB-RZAA
     Indication: Psoriasis
     Dosage: WEEK ZERO, FORM STRENGTH: 150 MILLIGRAM.
     Route: 058
     Dates: start: 20221005

REACTIONS (5)
  - Decreased appetite [Unknown]
  - Psoriasis [Unknown]
  - Fatigue [Recovered/Resolved]
  - Injection site pruritus [Unknown]
  - Headache [Recovered/Resolved]

NARRATIVE: CASE EVENT DATE: 20221005
